FAERS Safety Report 18402230 (Version 2)
Quarter: 2020Q4

REPORT INFORMATION
  Report Type: Spontaneous
  Country: CN (occurrence: CN)
  Receive Date: 20201019
  Receipt Date: 20201027
  Transmission Date: 20210114
  Serious: Yes (Hospitalization)
  Sender: FDA-Public Use
  Company Number: CN-ASTRAZENECA-2020SF35182

PATIENT
  Sex: Female

DRUGS (6)
  1. IRESSA [Suspect]
     Active Substance: GEFITINIB
     Indication: LUNG NEOPLASM MALIGNANT
     Route: 048
     Dates: start: 20191111, end: 20200202
  2. IRESSA [Suspect]
     Active Substance: GEFITINIB
     Indication: GENE MUTATION
     Route: 048
     Dates: start: 20200527
  3. IRESSA [Suspect]
     Active Substance: GEFITINIB
     Indication: LUNG NEOPLASM MALIGNANT
     Route: 048
     Dates: start: 20200527
  4. IRESSA [Suspect]
     Active Substance: GEFITINIB
     Indication: LUNG NEOPLASM MALIGNANT
     Route: 048
     Dates: start: 20190801
  5. IRESSA [Suspect]
     Active Substance: GEFITINIB
     Indication: GENE MUTATION
     Route: 048
     Dates: start: 20190801
  6. IRESSA [Suspect]
     Active Substance: GEFITINIB
     Indication: GENE MUTATION
     Route: 048
     Dates: start: 20191111, end: 20200202

REACTIONS (10)
  - Pleural effusion [Recovering/Resolving]
  - Chronic gastritis [Unknown]
  - Skin fissures [Not Recovered/Not Resolved]
  - Nodule [Not Recovered/Not Resolved]
  - Eczema [Not Recovered/Not Resolved]
  - Limb injury [Recovered/Resolved]
  - Abdominal distension [Not Recovered/Not Resolved]
  - Skin discolouration [Not Recovered/Not Resolved]
  - Ascites [Unknown]
  - Proteinuria [Not Recovered/Not Resolved]

NARRATIVE: CASE EVENT DATE: 201910
